FAERS Safety Report 8309696-5 (Version None)
Quarter: 2012Q2

REPORT INFORMATION
  Report Type: 
  Country: None (occurrence: None)
  Receive Date: 20120425
  Receipt Date: 20120413
  Transmission Date: 20120825
  Serious: No
  Sender: FDA-Public Use
  Company Number: US-JNJFOC-20120407630

PATIENT
  Sex: Female
  Weight: 86.18 kg

DRUGS (9)
  1. FENTANYL-100 [Suspect]
     Indication: BACK PAIN
     Route: 062
     Dates: start: 20110101, end: 20110101
  2. OXYCODONE HCL [Concomitant]
     Indication: PAIN
     Route: 048
     Dates: start: 20100101
  3. FENTANYL-100 [Suspect]
     Indication: BACK PAIN
     Route: 062
     Dates: start: 20110101, end: 20110801
  4. SIMVASTATIN [Concomitant]
     Indication: CARDIAC DISORDER
     Route: 048
     Dates: start: 20100101
  5. DURAGESIC-100 [Suspect]
     Indication: BACK PAIN
     Route: 062
     Dates: start: 20110801
  6. PROMETRIUM [Concomitant]
     Indication: HOT FLUSH
     Route: 048
     Dates: start: 20100101
  7. ROBAXIN [Concomitant]
     Indication: MUSCLE SPASMS
     Route: 048
     Dates: start: 20060101
  8. METOPROLOL TARTRATE [Concomitant]
     Indication: CARDIAC DISORDER
     Route: 048
     Dates: start: 20100101
  9. ESTROPIPATE [Concomitant]
     Indication: HOT FLUSH
     Route: 048
     Dates: start: 20100101

REACTIONS (9)
  - SOMNOLENCE [None]
  - POOR QUALITY DRUG ADMINISTERED [None]
  - PAIN [None]
  - MEMORY IMPAIRMENT [None]
  - IMPAIRED WORK ABILITY [None]
  - PRODUCT QUALITY ISSUE [None]
  - APPLICATION SITE RASH [None]
  - HYPERHIDROSIS [None]
  - BODY TEMPERATURE INCREASED [None]
